FAERS Safety Report 9294636 (Version 2)
Quarter: 2013Q2

REPORT INFORMATION
  Report Type: Spontaneous
  Country: US (occurrence: None)
  Receive Date: 20130514
  Receipt Date: 20130515
  Transmission Date: 20140414
  Serious: Yes (Hospitalization)
  Sender: FDA-Public Use
  Company Number: JPI-P-031470

PATIENT
  Age: 44 Year
  Sex: Male
  Weight: 146.51 kg

DRUGS (2)
  1. XYREM (500 MILLIGRAM/MILLILITERS, SOLUTION) (SODIUM OXYBATE) [Suspect]
     Indication: BRAIN INJURY
     Route: 048
     Dates: start: 20121220, end: 20130107
  2. TRAMADOL [Concomitant]

REACTIONS (5)
  - Intestinal obstruction [None]
  - Insomnia [None]
  - Dental caries [None]
  - Tooth fracture [None]
  - Drug effect decreased [None]
